FAERS Safety Report 6632448-9 (Version None)
Quarter: 2010Q1

REPORT INFORMATION
  Report Type: 
  Country: None (occurrence: None)
  Receive Date: 20100312
  Receipt Date: 20090603
  Transmission Date: 20100710
  Serious: No
  Sender: FDA-Public Use
  Company Number: 2009BI015367

PATIENT
  Age: 51 Year
  Sex: Female

DRUGS (3)
  1. AVONEX [Suspect]
     Indication: MULTIPLE SCLEROSIS
     Route: 030
     Dates: start: 19990101, end: 20030101
  2. AVONEX [Suspect]
     Route: 030
     Dates: start: 20030101
  3. PNEUMOVAX 23 [Concomitant]
     Indication: ANTIBIOTIC PROPHYLAXIS
     Route: 030
     Dates: start: 20090519, end: 20090519

REACTIONS (4)
  - CHILLS [None]
  - HEADACHE [None]
  - PAIN [None]
  - VACCINATION COMPLICATION [None]
